FAERS Safety Report 19498578 (Version 3)
Quarter: 2021Q3

REPORT INFORMATION
  Report Type: Report from Study
  Country: US (occurrence: US)
  Receive Date: 20210706
  Receipt Date: 20210816
  Transmission Date: 20211014
  Serious: No
  Sender: FDA-Public Use
  Company Number: US-BIOVITRUM-2021US6620

PATIENT
  Sex: Male

DRUGS (1)
  1. KINERET [Suspect]
     Active Substance: ANAKINRA
     Indication: PRODUCT USED FOR UNKNOWN INDICATION
     Route: 058

REACTIONS (11)
  - Asthenia [Recovered/Resolved]
  - Product dose omission issue [Unknown]
  - Contusion [Unknown]
  - Sinusitis [Unknown]
  - Skin disorder [Recovered/Resolved]
  - Rash [Recovered/Resolved]
  - Hypersensitivity [Unknown]
  - Urticaria [Recovering/Resolving]
  - Illness [Unknown]
  - Fatigue [Recovered/Resolved]
  - Abdominal discomfort [Recovered/Resolved]
